FAERS Safety Report 5355208-8 (Version None)
Quarter: 2007Q2

REPORT INFORMATION
  Report Type: 
  Country: None (occurrence: None)
  Receive Date: 20070529
  Receipt Date: 20060706
  Transmission Date: 20071010
  Serious: Yes (Other)
  Sender: FDA-Public Use
  Company Number: 146486USA

PATIENT
  Age: 52 Year
  Sex: Male

DRUGS (5)
  1. CEPHALEXIN [Suspect]
     Indication: POSTOPERATIVE CARE
     Dosage: 500 MG, ORAL
     Route: 048
     Dates: start: 20060627, end: 20060702
  2. CEPHALEXIN [Suspect]
     Indication: PROPHYLAXIS
     Dosage: 500 MG, ORAL
     Route: 048
     Dates: start: 20060627, end: 20060702
  3. VITAMIN [Concomitant]
  4. PAROXETINE HYDROCHLORIDE [Concomitant]
  5. ACYCLOVIR [Concomitant]

REACTIONS (3)
  - LIP SWELLING [None]
  - PRURITUS [None]
  - URTICARIA [None]
